FAERS Safety Report 25090444 (Version 2)
Quarter: 2025Q1

REPORT INFORMATION
  Report Type: Spontaneous
  Country: US (occurrence: US)
  Receive Date: 20250318
  Receipt Date: 20250320
  Transmission Date: 20250408
  Serious: No
  Sender: PFIZER
  Company Number: US-PFIZER INC-202500058137

PATIENT
  Age: 70 Year
  Sex: Female

DRUGS (1)
  1. LORBRENA [Suspect]
     Active Substance: LORLATINIB
     Indication: Non-small cell lung cancer metastatic
     Dosage: 100 MG, 1X/DAY
     Route: 048

REACTIONS (4)
  - Disinhibition [Recovered/Resolved]
  - Impulse-control disorder [Recovered/Resolved]
  - Feeling abnormal [Recovered/Resolved]
  - Irritability [Recovered/Resolved]
